FAERS Safety Report 9261970 (Version 1)
Quarter: 2013Q2

REPORT INFORMATION
  Report Type: Spontaneous
  Country: US (occurrence: US)
  Receive Date: 20130429
  Receipt Date: 20130429
  Transmission Date: 20140414
  Serious: Yes (Hospitalization)
  Sender: FDA-Public Use
  Company Number: US-B.I. PHARMACEUTICALS,INC./RIDGEFIELD-2013-BI-10920BP

PATIENT
  Age: 74 Year
  Sex: Female
  Weight: 147 kg

DRUGS (6)
  1. SPIRIVA [Suspect]
     Indication: CHRONIC OBSTRUCTIVE PULMONARY DISEASE
     Dosage: 18 MCG
     Route: 055
     Dates: start: 201211
  2. SPIRIVA [Suspect]
     Dosage: 18 MCG
     Route: 048
  3. MOBIC [Suspect]
     Indication: ARTHRITIS
     Route: 048
     Dates: start: 2012, end: 20130213
  4. LEVOTHYROXINE [Concomitant]
     Indication: HYPOTHYROIDISM
     Dates: start: 1980
  5. TYLENOL [Concomitant]
     Indication: ARTHRITIS
     Dates: start: 20130213
  6. WARFARIN [Concomitant]
     Indication: THROMBOSIS
     Dates: start: 1993

REACTIONS (3)
  - Pulmonary hypertension [Not Recovered/Not Resolved]
  - Pleural effusion [Recovered/Resolved]
  - Incorrect route of drug administration [Recovered/Resolved]
